FAERS Safety Report 7145477-6 (Version None)
Quarter: 2010Q4

REPORT INFORMATION
  Report Type: 
  Country: None (occurrence: None)
  Receive Date: 20101208
  Receipt Date: 20101202
  Transmission Date: 20110411
  Serious: Yes (Death)
  Sender: FDA-Public Use
  Company Number: US-ROCHE-746226

PATIENT
  Age: 52 Year
  Sex: Male

DRUGS (8)
  1. OSELTAMIVIR [Suspect]
     Indication: H1N1 INFLUENZA
     Route: 065
  2. OSELTAMIVIR [Suspect]
     Route: 065
  3. VORICONAZOLE [Concomitant]
  4. METHYLPREDNISOLONE [Concomitant]
  5. METHYLPREDNISOLONE [Concomitant]
     Dosage: DOSE INREASED
  6. TACROLIMUS [Concomitant]
  7. SIROLIMUS [Concomitant]
  8. IMATINIB MESYLATE [Concomitant]

REACTIONS (2)
  - DRUG INEFFECTIVE [None]
  - PATHOGEN RESISTANCE [None]
